FAERS Safety Report 14832125 (Version 1)
Quarter: 2018Q2

REPORT INFORMATION
  Report Type: Spontaneous
  Country: US (occurrence: US)
  Receive Date: 20180409
  Receipt Date: 20180409
  Transmission Date: 20180711
  Serious: Yes (Other)
  Sender: FDA-Public Use
  Company Number: None

PATIENT
  Age: 67 Year
  Sex: Female
  Weight: 49.59 kg

DRUGS (4)
  1. CALCIUM + D 500-200 MG TWICE DAILY [Concomitant]
  2. VITAMIN D 2000 IU DAILY [Concomitant]
  3. MULTIPLE VITAMIN 1 DAILY [Concomitant]
  4. PROLIA [Suspect]
     Active Substance: DENOSUMAB
     Indication: OSTEOPOROSIS
     Dosage: 60 MG EVERY 6 MONTHS SUBCUTANEOUS?
     Route: 058
     Dates: start: 20180326, end: 20180326

REACTIONS (7)
  - Chest discomfort [None]
  - Tinnitus [None]
  - Throat tightness [None]
  - Dizziness [None]
  - Muscular weakness [None]
  - Gait disturbance [None]
  - Throat irritation [None]

NARRATIVE: CASE EVENT DATE: 20180327
